FAERS Safety Report 6030925-5 (Version None)
Quarter: 2009Q1

REPORT INFORMATION
  Report Type: 
  Country: None (occurrence: None)
  Receive Date: 20090106
  Receipt Date: 20081222
  Transmission Date: 20090719
  Serious: Yes (Other)
  Sender: FDA-Public Use
  Company Number: 2008S1021431

PATIENT
  Age: 91 Year
  Sex: Female
  Weight: 72.5755 kg

DRUGS (17)
  1. FENTANYL TRANSDERMAL SYSTEM [Suspect]
     Indication: ARTHRALGIA
     Dosage: 12 UG; EVERY HOUR; TRANSDERMAL
     Route: 062
     Dates: start: 20081101, end: 20081128
  2. FENTANYL TRANSDERMAL SYSTEM [Suspect]
     Indication: BACK PAIN
     Dosage: 12 UG; EVERY HOUR; TRANSDERMAL
     Route: 062
     Dates: start: 20081101, end: 20081128
  3. FENTANYL TRANSDERMAL SYSTEM [Suspect]
     Indication: ARTHRALGIA
     Dosage: 25 UG; EVERY HOUR; TRANSDERMAL
     Route: 062
     Dates: start: 20081101, end: 20081128
  4. FENTANYL TRANSDERMAL SYSTEM [Suspect]
     Indication: BACK PAIN
     Dosage: 25 UG; EVERY HOUR; TRANSDERMAL
     Route: 062
     Dates: start: 20081101, end: 20081128
  5. ATENOLOL [Concomitant]
  6. PRILOSEC [Concomitant]
  7. PRILOSEC [Concomitant]
  8. CELEBREX [Concomitant]
  9. DEMADEX [Concomitant]
  10. SPIRONOLACTONE [Concomitant]
  11. ASPIRIN [Concomitant]
  12. LIPITOR [Concomitant]
  13. DYAZIDE [Concomitant]
  14. STOOL SOFTENER [Concomitant]
  15. ZOCOR [Concomitant]
  16. CENTRUM SILVER /01292501 [Concomitant]
  17. NITROGLYCERIN [Concomitant]

REACTIONS (7)
  - AGITATION [None]
  - ASTHENIA [None]
  - FATIGUE [None]
  - HALLUCINATION [None]
  - LETHARGY [None]
  - MEMORY IMPAIRMENT [None]
  - URINARY TRACT INFECTION [None]
